FAERS Safety Report 20668260 (Version 1)
Quarter: 2022Q2

REPORT INFORMATION
  Report Type: Spontaneous
  Country: US (occurrence: US)
  Receive Date: 20220404
  Receipt Date: 20220404
  Transmission Date: 20220721
  Serious: No
  Sender: FDA-Public Use
  Company Number: US-drreddys-SPO/USA/22/0148260

PATIENT
  Age: 26 Year
  Sex: Female

DRUGS (1)
  1. ZENATANE [Suspect]
     Active Substance: ISOTRETINOIN
     Indication: Product used for unknown indication
     Dosage: RMA ISSUE DATE. 23 FEBRUARY 2022 04:52:50 PM, 18 JANUARY 2022 11:53:13 AM, 08 DECEMBER 2021 08:49:50

REACTIONS (1)
  - Treatment noncompliance [Unknown]
